FAERS Safety Report 15965778 (Version 1)
Quarter: 2019Q1

REPORT INFORMATION
  Report Type: Spontaneous
  Country: US (occurrence: US)
  Receive Date: 20190215
  Receipt Date: 20190215
  Transmission Date: 20190418
  Serious: Yes (Death)
  Sender: FDA-Public Use
  Company Number: US-UNITED THERAPEUTICS-UNT-2019-002693

PATIENT
  Age: 60 Year
  Sex: Female

DRUGS (1)
  1. REMODULIN [Suspect]
     Active Substance: TREPROSTINIL
     Indication: PULMONARY ARTERIAL HYPERTENSION
     Dosage: 0.0365 ?G/KG, CONTINUING
     Route: 058
     Dates: start: 20161203

REACTIONS (1)
  - Death [Fatal]

NARRATIVE: CASE EVENT DATE: 20190211
